FAERS Safety Report 9162848 (Version 1)
Quarter: 2013Q1

REPORT INFORMATION
  Report Type: Spontaneous
  Country: US (occurrence: US)
  Receive Date: 20130314
  Receipt Date: 20130314
  Transmission Date: 20140127
  Serious: Yes (Other)
  Sender: FDA-Public Use
  Company Number: US-PFIZER INC-2013086333

PATIENT
  Age: 71 Year
  Sex: Female
  Weight: 80.73 kg

DRUGS (4)
  1. LYRICA [Suspect]
     Indication: HERPES ZOSTER
     Dosage: 50 MG, 1X/DAY
     Route: 048
     Dates: start: 2004
  2. LYRICA [Suspect]
     Indication: FIBROMYALGIA
  3. COZAAR [Suspect]
     Indication: HYPERTENSION
     Dosage: 50 MG, 1X/DAY IN THE MORNING
  4. TOPROL [Suspect]
     Indication: HYPERTENSION
     Dosage: 25 MG, 1X/DAY AT NIGHT

REACTIONS (4)
  - Acoustic neuroma [Not Recovered/Not Resolved]
  - Dizziness [Not Recovered/Not Resolved]
  - Eye disorder [Not Recovered/Not Resolved]
  - Blood pressure increased [Unknown]
